FAERS Safety Report 5229279-3 (Version None)
Quarter: 2007Q1

REPORT INFORMATION
  Report Type: 
  Country: None (occurrence: None)
  Receive Date: 20070131
  Receipt Date: 20070127
  Transmission Date: 20070707
  Serious: Yes (Hospitalization)
  Sender: FDA-Public Use
  Company Number: 220429

PATIENT
  Age: 57 Year
  Sex: Female

DRUGS (7)
  1. AVASTIN [Suspect]
     Indication: COLON CANCER
     Dosage: INTRAVENOUS
     Route: 042
     Dates: start: 20050719
  2. OXALIPLATIN [Suspect]
     Indication: COLON CANCER
     Dosage: INTRAVENOUS
     Route: 042
  3. FLUOROURACIL [Concomitant]
  4. LEUCOVORIN CALCIUM [Concomitant]
  5. OXYCONTIN [Concomitant]
  6. ZOFRAN [Concomitant]
  7. DURAGEISC (FENTANYL CITRATE) [Concomitant]

REACTIONS (6)
  - DEHYDRATION [None]
  - DIARRHOEA [None]
  - HERPES VIRUS INFECTION [None]
  - OESOPHAGITIS [None]
  - THROAT TIGHTNESS [None]
  - WEIGHT DECREASED [None]
